FAERS Safety Report 10095266 (Version 2)
Quarter: 2014Q2

REPORT INFORMATION
  Report Type: Spontaneous
  Country: US (occurrence: US)
  Receive Date: 20140422
  Receipt Date: 20140422
  Transmission Date: 20141212
  Serious: No
  Sender: FDA-Public Use
  Company Number: US-GILEAD-2013-0073996

PATIENT
  Sex: Male

DRUGS (15)
  1. LETAIRIS [Suspect]
     Indication: PULMONARY HYPERTENSION
     Dosage: 10 MG, QD
     Dates: start: 20120209
  2. LETAIRIS [Suspect]
     Indication: HEART DISEASE CONGENITAL
  3. DIGOXIN [Concomitant]
  4. ENALAPRIL [Concomitant]
  5. GLIMEPIRIDE [Concomitant]
  6. IPRATROPIUM BROMIDE [Concomitant]
  7. KLOR-CON [Concomitant]
  8. LANTUS [Concomitant]
  9. LEVOTHYROXINE SODIUM [Concomitant]
  10. METFORMIN HCL [Concomitant]
  11. OMEPRAZOLE [Concomitant]
  12. ONDANSETRON [Concomitant]
  13. SILDENAFIL CITRATE [Concomitant]
  14. TORSEMIDE [Concomitant]
     Dosage: UNK
     Route: 048
  15. ZOLPIDEM TARTRATE [Concomitant]
     Dosage: 10 MG, PRN
     Route: 048

REACTIONS (1)
  - Malaise [Unknown]
